FAERS Safety Report 5717694-0 (Version None)
Quarter: 2008Q2

REPORT INFORMATION
  Report Type: 
  Country: None (occurrence: None)
  Receive Date: 20080425
  Receipt Date: 20080418
  Transmission Date: 20081010
  Serious: Yes (Hospitalization)
  Sender: FDA-Public Use
  Company Number: US-ASTRAZENECA-2008UW08000

PATIENT
  Age: 63 Year
  Sex: Female
  Weight: 63.5 kg

DRUGS (5)
  1. SEROQUEL [Suspect]
     Indication: SLEEP DISORDER
     Dosage: TWO 100 MG
     Route: 048
     Dates: start: 20050101
  2. SEROQUEL [Suspect]
     Dosage: TWO AND A HALF 100 MG
     Route: 048
  3. METOPROLOL TARTRATE [Concomitant]
  4. PROTONIX [Concomitant]
  5. LIPITOR [Concomitant]

REACTIONS (2)
  - MYOCARDIAL INFARCTION [None]
  - NON-CARDIAC CHEST PAIN [None]
